FAERS Safety Report 10757343 (Version 1)
Quarter: 2015Q1

REPORT INFORMATION
  Report Type: Spontaneous
  Country: CN (occurrence: None)
  Receive Date: 20150130
  Receipt Date: 20150130
  Transmission Date: 20150721
  Serious: Yes (Hospitalization, Other)
  Sender: FDA-Public Use
  Company Number: CN2015010534

PATIENT
  Age: 54 Year
  Sex: Female
  Weight: 55.5 kg

DRUGS (3)
  1. VIREAD [Suspect]
     Active Substance: TENOFOVIR DISOPROXIL FUMARATE
     Indication: ACQUIRED IMMUNODEFICIENCY SYNDROME
     Route: 048
     Dates: start: 20121201, end: 20140815
  2. KALETRA [Suspect]
     Active Substance: LOPINAVIR\RITONAVIR
     Indication: ACQUIRED IMMUNODEFICIENCY SYNDROME
     Route: 048
     Dates: start: 20121201, end: 20140815
  3. HEPTODIN [Suspect]
     Active Substance: LAMIVUDINE
     Indication: ACQUIRED IMMUNODEFICIENCY SYNDROME
     Route: 048
     Dates: start: 20121201, end: 20140815

REACTIONS (8)
  - Decreased appetite [None]
  - Renal injury [None]
  - Acidosis [None]
  - Hypophagia [None]
  - Hypokalaemia [None]
  - Nausea [None]
  - Abdominal distension [None]
  - Renal failure [None]

NARRATIVE: CASE EVENT DATE: 20140903
